FAERS Safety Report 20950278 (Version 1)
Quarter: 2022Q2

REPORT INFORMATION
  Report Type: Spontaneous
  Country: None (occurrence: PT)
  Receive Date: 20220613
  Receipt Date: 20220613
  Transmission Date: 20220721
  Serious: Yes (Death, Other)
  Sender: FDA-Public Use
  Company Number: PT-B.Braun Medical Inc.-2129758

PATIENT

DRUGS (67)
  1. ACETAMINOPHEN [Suspect]
     Active Substance: ACETAMINOPHEN
  2. GINKGO [Suspect]
     Active Substance: GINKGO
  3. SERTRALINE [Suspect]
     Active Substance: SERTRALINE HYDROCHLORIDE
  4. ESOMEPRAZOLE. [Suspect]
     Active Substance: ESOMEPRAZOLE MAGNESIUM
  5. RIBAVIRIN [Suspect]
     Active Substance: RIBAVIRIN
  6. ESCITALOPRAM [Suspect]
     Active Substance: ESCITALOPRAM OXALATE
  7. ZOLEDRONIC ACID [Suspect]
     Active Substance: ZOLEDRONIC ACID
  8. POTASSIUM IODIDE [Suspect]
     Active Substance: POTASSIUM IODIDE
  9. ATORVASTATIN CALCIUM [Suspect]
     Active Substance: ATORVASTATIN CALCIUM
  10. ANASTROZOLE [Suspect]
     Active Substance: ANASTROZOLE
  11. FLUVASTATIN [Suspect]
     Active Substance: FLUVASTATIN SODIUM
  12. ACECLOFENAC [Suspect]
     Active Substance: ACECLOFENAC
  13. ASPIRIN [Suspect]
     Active Substance: ASPIRIN
  14. DILTIAZEM HYDROCHLORIDE [Suspect]
     Active Substance: DILTIAZEM HYDROCHLORIDE
  15. CHOLECALCIFEROL [Suspect]
     Active Substance: CHOLECALCIFEROL
  16. NITROGLYCERIN [Suspect]
     Active Substance: NITROGLYCERIN
  17. PRAVASTATIN [Suspect]
     Active Substance: PRAVASTATIN
  18. ALISKIREN. [Suspect]
     Active Substance: ALISKIREN HEMIFUMARATE
  19. DOMPERIDONE [Suspect]
     Active Substance: DOMPERIDONE
  20. HYDROMORPHONE HCL [Suspect]
     Active Substance: HYDROMORPHONE HYDROCHLORIDE
  21. HUMAN IMMUNOGLOBULIN G [Suspect]
     Active Substance: HUMAN IMMUNOGLOBULIN G
  22. BRINZOLAMIDE [Suspect]
     Active Substance: BRINZOLAMIDE
  23. ENOXAPARIN [Suspect]
     Active Substance: ENOXAPARIN
  24. SOFOSBUVIR [Suspect]
     Active Substance: SOFOSBUVIR
  25. CODEINE [Suspect]
     Active Substance: CODEINE
  26. PREGABALIN [Suspect]
     Active Substance: PREGABALIN
  27. VERAPAMIL HYDROCHLORIDE [Suspect]
     Active Substance: VERAPAMIL HYDROCHLORIDE
  28. LEDIPASVIR [Suspect]
     Active Substance: LEDIPASVIR
  29. DOCETAXEL [Suspect]
     Active Substance: DOCETAXEL
  30. BISOPROLOL. [Suspect]
     Active Substance: BISOPROLOL FUMARATE
  31. LETROZOLE [Suspect]
     Active Substance: LETROZOLE
  32. TAMSULOSIN HYDROCHLORIDE [Suspect]
     Active Substance: TAMSULOSIN HYDROCHLORIDE
  33. PITAVASTATIN. [Suspect]
     Active Substance: PITAVASTATIN CALCIUM
  34. GLUCOSAMINE [Suspect]
     Active Substance: GLUCOSAMINE
  35. XYZAL [Suspect]
     Active Substance: LEVOCETIRIZINE DIHYDROCHLORIDE
  36. PENTOXIFYLLINE [Suspect]
     Active Substance: PENTOXIFYLLINE
  37. EZETIMIBE [Suspect]
     Active Substance: EZETIMIBE
  38. NILOTINIB [Suspect]
     Active Substance: NILOTINIB
  39. TOCILIZUMAB [Suspect]
     Active Substance: TOCILIZUMAB
  40. PROPRANOLOL HYDROCHLORIDE [Suspect]
     Active Substance: PROPRANOLOL HYDROCHLORIDE
  41. AGOMELATINE [Suspect]
     Active Substance: AGOMELATINE
  42. VENLAFAXINE HYDROCHLORIDE [Suspect]
     Active Substance: VENLAFAXINE HYDROCHLORIDE
  43. IMATINIB. [Suspect]
     Active Substance: IMATINIB MESYLATE
  44. DUTASTERIDE [Suspect]
     Active Substance: DUTASTERIDE
  45. NIMESULIDE [Suspect]
     Active Substance: NIMESULIDE
  46. ETANERCEPT [Suspect]
     Active Substance: ETANERCEPT
  47. IBANDRONIC ACID [Suspect]
     Active Substance: IBANDRONIC ACID
  48. MIRTAZAPINE [Suspect]
     Active Substance: MIRTAZAPINE
  49. CILAZAPRIL ANHYDROUS [Suspect]
     Active Substance: CILAZAPRIL ANHYDROUS
  50. ESCHERICHIA COLI [Suspect]
     Active Substance: ESCHERICHIA COLI
  51. EXEMESTANE [Suspect]
     Active Substance: EXEMESTANE
  52. ADALIMUMAB [Suspect]
     Active Substance: ADALIMUMAB
  53. SIMVASTATIN [Suspect]
     Active Substance: SIMVASTATIN
  54. HYDROCHLOROTHIAZIDE [Suspect]
     Active Substance: HYDROCHLOROTHIAZIDE
  55. PENTAZOCINE [Suspect]
     Active Substance: PENTAZOCINE
  56. TELMISARTAN [Suspect]
     Active Substance: TELMISARTAN
  57. NORFLOXACIN [Suspect]
     Active Substance: NORFLOXACIN
  58. BUPRENORPHINE [Suspect]
     Active Substance: BUPRENORPHINE
  59. NORFLOXACIN [Suspect]
     Active Substance: NORFLOXACIN
  60. FENOFIBRATE [Suspect]
     Active Substance: FENOFIBRATE
  61. SODIUM PICOSULFATE [Suspect]
     Active Substance: SODIUM PICOSULFATE
  62. ALENDRONIC ACID [Suspect]
     Active Substance: ALENDRONIC ACID
  63. DONEPEZIL [Suspect]
     Active Substance: DONEPEZIL
  64. CELECOXIB [Suspect]
     Active Substance: CELECOXIB
  65. MYCOPHENOLIC ACID [Suspect]
     Active Substance: MYCOPHENOLIC ACID
  66. VORTIOXETINE [Suspect]
     Active Substance: VORTIOXETINE
  67. INDOMETHACIN [Suspect]
     Active Substance: INDOMETHACIN

REACTIONS (45)
  - Myalgia [None]
  - Eye pain [None]
  - Generalised oedema [None]
  - Diplopia [None]
  - Ocular discomfort [None]
  - Drug interaction [None]
  - Presyncope [None]
  - Insomnia [None]
  - Syncope [None]
  - Head discomfort [None]
  - Ascites [None]
  - Somnolence [None]
  - Sepsis [None]
  - Cardio-respiratory arrest [None]
  - Abdominal pain [None]
  - Nausea [None]
  - Arthralgia [None]
  - Haematemesis [None]
  - Asthenia [None]
  - Pyrexia [None]
  - Urinary tract disorder [None]
  - Blood pressure increased [None]
  - Headache [None]
  - Dyspnoea [None]
  - Fall [None]
  - Photophobia [None]
  - Coma [None]
  - Amaurosis fugax [None]
  - Chills [None]
  - Altered state of consciousness [None]
  - Haematuria [None]
  - Fatigue [None]
  - Haemorrhagic stroke [None]
  - Dizziness [None]
  - Vomiting [None]
  - Tinnitus [None]
  - Pruritus [None]
  - Cough [None]
  - Vision blurred [None]
  - Diarrhoea [None]
  - Tachycardia [None]
  - Abdominal pain upper [None]
  - Decreased appetite [None]
  - Malaise [None]
  - Blindness [None]
